FAERS Safety Report 18817468 (Version 1)
Quarter: 2021Q1

REPORT INFORMATION
  Report Type: Report from Study
  Country: None (occurrence: MX)
  Receive Date: 20210201
  Receipt Date: 20210201
  Transmission Date: 20210419
  Serious: Yes (Other)
  Sender: FDA-Public Use
  Company Number: MX-ABBVIE-21P-107-3752113-00

PATIENT
  Age: 82 Year
  Sex: Male
  Weight: 75 kg

DRUGS (3)
  1. CENTRUM SILVER [Concomitant]
     Active Substance: MINERALS\VITAMINS
     Indication: IMMUNE SYSTEM DISORDER
     Dosage: DAILY DOSE 1 TABLET
     Route: 048
  2. LIPIDIL [Suspect]
     Active Substance: FENOFIBRATE
     Indication: LIPIDS ABNORMAL
     Dosage: DAILY DOSE 200 MILLIGRAM
     Route: 048
     Dates: start: 2017
  3. LODESTAR [Concomitant]
     Indication: HYPERTENSION
     Dosage: DAILY DOSE 50 MILLIGRAM
     Route: 048

REACTIONS (2)
  - Hypertension [Not Recovered/Not Resolved]
  - Deafness [Not Recovered/Not Resolved]

NARRATIVE: CASE EVENT DATE: 2019
